FAERS Safety Report 13467882 (Version 2)
Quarter: 2017Q4

REPORT INFORMATION
  Report Type: Spontaneous
  Country: CH (occurrence: CH)
  Receive Date: 20170421
  Receipt Date: 20171012
  Transmission Date: 20180320
  Serious: Yes (Other)
  Sender: FDA-Public Use
  Company Number: CH-REGENERON PHARMACEUTICALS, INC.-2017-14628

PATIENT

DRUGS (1)
  1. EYLEA [Suspect]
     Active Substance: AFLIBERCEPT
     Indication: PRODUCT USED FOR UNKNOWN INDICATION
     Dosage: DOSE AND FREQUENCY AND TOTAL NUMBER OF INJECTIONS RECEIVED WAS NOT REPORTED
     Dates: start: 20161212

REACTIONS (4)
  - Intraocular pressure increased [Unknown]
  - Retinal artery occlusion [Unknown]
  - Blindness [Unknown]
  - Eye disorder [Unknown]
